FAERS Safety Report 5252329-5 (Version None)
Quarter: 2007Q1

REPORT INFORMATION
  Report Type: 
  Country: None (occurrence: None)
  Receive Date: 20070301
  Receipt Date: 20060612
  Transmission Date: 20070707
  Serious: Yes (Death)
  Sender: FDA-Public Use
  Company Number: US-BRISTOL-MYERS SQUIBB COMPANY-13369855

PATIENT
  Age: 51 Year
  Sex: Female

DRUGS (5)
  1. TAXOL [Suspect]
     Indication: CERVIX CARCINOMA
     Route: 042
     Dates: start: 20051024, end: 20051220
  2. DECADRON [Concomitant]
  3. BENADRYL [Concomitant]
  4. PEPCID [Concomitant]
  5. DURAGESIC-100 [Concomitant]

REACTIONS (1)
  - MALIGNANT NEOPLASM PROGRESSION [None]
